FAERS Safety Report 9086824 (Version 1)
Quarter: 2013Q1

REPORT INFORMATION
  Report Type: Report from Study
  Country: US (occurrence: US)
  Receive Date: 20130130
  Receipt Date: 20130130
  Transmission Date: 20140127
  Serious: No
  Sender: FDA-Public Use
  Company Number: US-ABBOTT-12P-163-0989146-00

PATIENT
  Age: 54 Year
  Sex: Female

DRUGS (3)
  1. HUMIRA [Suspect]
     Indication: PSORIASIS
     Dosage: DAY 1
     Route: 058
     Dates: start: 20120921
  2. HUMIRA [Suspect]
     Dosage: DAY 8
     Route: 058
  3. HUMIRA [Suspect]
     Route: 058

REACTIONS (6)
  - Decreased appetite [Unknown]
  - Anxiety [Unknown]
  - Irritability [Unknown]
  - Abdominal distension [Unknown]
  - Constipation [Unknown]
  - Nausea [Unknown]
